FAERS Safety Report 6382881-8 (Version None)
Quarter: 2009Q3

REPORT INFORMATION
  Report Type: 
  Country: None (occurrence: None)
  Receive Date: 20090928
  Receipt Date: 20090928
  Transmission Date: 20100115
  Serious: No
  Sender: FDA-Public Use
  Company Number: None

PATIENT
  Age: 60 Year
  Sex: Male
  Weight: 96.62 kg

DRUGS (1)
  1. ANCEF [Suspect]
     Indication: OSTEOMYELITIS
     Dosage: 12 GRAM EVERY 8 HOURS IV
     Route: 042
     Dates: start: 20090902, end: 20090909

REACTIONS (1)
  - RASH [None]
